FAERS Safety Report 14016219 (Version 1)
Quarter: 2017Q3

REPORT INFORMATION
  Report Type: Spontaneous
  Country: US (occurrence: US)
  Receive Date: 20170927
  Receipt Date: 20170927
  Transmission Date: 20171128
  Serious: No
  Sender: FDA-Public Use
  Company Number: US-SA-2016SA187523

PATIENT
  Age: 61 Year
  Sex: Female

DRUGS (2)
  1. LEMTRADA [Suspect]
     Active Substance: ALEMTUZUMAB
     Indication: MULTIPLE SCLEROSIS
     Route: 041
     Dates: start: 20161007, end: 20161007
  2. LEMTRADA [Suspect]
     Active Substance: ALEMTUZUMAB
     Indication: MULTIPLE SCLEROSIS
     Route: 041
     Dates: start: 20161004, end: 20161005

REACTIONS (4)
  - Rash pruritic [Recovered/Resolved]
  - Oropharyngeal pain [Unknown]
  - Dysgeusia [Unknown]
  - Headache [Unknown]

NARRATIVE: CASE EVENT DATE: 20161005
